FAERS Safety Report 8858680 (Version 1)
Quarter: 2012Q4

REPORT INFORMATION
  Report Type: 
  Country: US (occurrence: US)
  Receive Date: 20121024
  Receipt Date: 20121024
  Transmission Date: 20130627
  Serious: Yes (Other)
  Sender: FDA-Public Use
  Company Number: US-PFIZER INC-2012264484

PATIENT
  Age: 62 Year
  Sex: Male
  Weight: 81.63 kg

DRUGS (4)
  1. LYRICA [Suspect]
     Indication: FIBROMYALGIA
     Dosage: 75 mg, 3x/day
     Route: 048
     Dates: start: 20120912
  2. LYRICA [Suspect]
     Indication: PAIN
  3. WELLBUTRIN [Concomitant]
     Indication: BIPOLAR DISORDER
     Dosage: UNK
  4. ALTACE [Concomitant]
     Indication: HYPERTENSION
     Dosage: UNK

REACTIONS (1)
  - Weight increased [Unknown]
